FAERS Safety Report 8255465-4 (Version None)
Quarter: 2012Q1

REPORT INFORMATION
  Report Type: 
  Country: None (occurrence: None)
  Receive Date: 20120330
  Receipt Date: 20120309
  Transmission Date: 20120608
  Serious: Yes (Hospitalization)
  Sender: FDA-Public Use
  Company Number: 2012FO000921

PATIENT
  Age: 74 Year
  Sex: Female
  Weight: 92.9874 kg

DRUGS (3)
  1. CLOBETASOL PROPIONATE [Suspect]
     Indication: LICHEN SCLEROSUS
     Dosage: 0.05 PCT;QD;TOP
     Route: 061
     Dates: start: 20090101, end: 20110101
  2. OCUVITE /01053801/ [Concomitant]
  3. CENTRUM SILVER /01292501/ [Concomitant]

REACTIONS (3)
  - MACULAR DEGENERATION [None]
  - MYOCARDIAL INFARCTION [None]
  - DIVERTICULUM [None]
